FAERS Safety Report 12618344 (Version 1)
Quarter: 2016Q3

REPORT INFORMATION
  Report Type: Spontaneous
  Country: IT (occurrence: IT)
  Receive Date: 20160803
  Receipt Date: 20160803
  Transmission Date: 20161109
  Serious: Yes (Other)
  Sender: FDA-Public Use
  Company Number: IT-ACTAVIS-2016-16682

PATIENT
  Age: 77 Year
  Sex: Male
  Weight: 69 kg

DRUGS (5)
  1. AVASTIN [Suspect]
     Active Substance: BEVACIZUMAB
     Indication: RECTAL ADENOCARCINOMA
     Dosage: 340 MG, CYCLICAL
     Route: 042
     Dates: start: 20150210
  2. IRINOTECAN [Suspect]
     Active Substance: IRINOTECAN
     Indication: RECTAL ADENOCARCINOMA
     Dosage: 320 MG, CYCLICAL
     Route: 042
     Dates: start: 20150210
  3. FLUOROURACIL. [Suspect]
     Active Substance: FLUOROURACIL
     Indication: RECTAL ADENOCARCINOMA
     Dosage: 4320 MG, CYCLICAL
     Route: 042
     Dates: start: 20150210
  4. ACEQUIDE [Concomitant]
     Indication: PRODUCT USED FOR UNKNOWN INDICATION
     Dosage: UNK
  5. LEDERFOLIN [Concomitant]
     Active Substance: LEUCOVORIN CALCIUM
     Indication: RECTAL ADENOCARCINOMA
     Dosage: 360 MG, DAILY
     Route: 042
     Dates: start: 20150210, end: 20150728

REACTIONS (4)
  - Thrombocytopenia [Recovering/Resolving]
  - Abdominal pain [Recovering/Resolving]
  - Neutropenia [Recovering/Resolving]
  - Muscle spasms [Recovering/Resolving]

NARRATIVE: CASE EVENT DATE: 20150319
